FAERS Safety Report 14392326 (Version 3)
Quarter: 2018Q1

REPORT INFORMATION
  Report Type: Spontaneous
  Country: ID (occurrence: ID)
  Receive Date: 20180116
  Receipt Date: 20180322
  Transmission Date: 20180509
  Serious: Yes (Death, Other)
  Sender: FDA-Public Use
  Company Number: ID-GLAXOSMITHKLINE-ID2018GSK006934

PATIENT
  Age: 50 Year
  Sex: Female

DRUGS (1)
  1. LAMICTAL [Suspect]
     Active Substance: LAMOTRIGINE
     Indication: BIPOLAR DISORDER
     Dosage: UNK
     Route: 048
     Dates: end: 2013

REACTIONS (9)
  - Oral discomfort [Unknown]
  - Chapped lips [Unknown]
  - Condition aggravated [Unknown]
  - Rash [Unknown]
  - Tongue discomfort [Unknown]
  - Stevens-Johnson syndrome [Fatal]
  - Oral mucosal eruption [Unknown]
  - Jaundice [Unknown]
  - Mouth ulceration [Unknown]

NARRATIVE: CASE EVENT DATE: 2013
